FAERS Safety Report 10149777 (Version 1)
Quarter: 2014Q2

REPORT INFORMATION
  Report Type: Spontaneous
  Country: IN (occurrence: None)
  Receive Date: 20140430
  Receipt Date: 20140430
  Transmission Date: 20141212
  Serious: Yes (Hospitalization)
  Sender: FDA-Public Use
  Company Number: 2014-001125

PATIENT
  Age: 32 Year
  Sex: Female

DRUGS (6)
  1. MESALAZINE [Suspect]
     Indication: CROHN^S DISEASE
     Route: 048
  2. MESALAZINE [Suspect]
     Indication: CROHN^S DISEASE
     Route: 048
  3. ETHIONAMIDE (ETHIONAMIDE) [Concomitant]
  4. ETHAMBUTOL (ETHAMBUTOL) [Concomitant]
  5. CYCLOSERINE (CYCLOSERINE) [Concomitant]
  6. LEVOFLOXACIN (LEVOFLOXACIN) [Concomitant]

REACTIONS (7)
  - Posterior reversible encephalopathy syndrome [None]
  - Status epilepticus [None]
  - Sensory disturbance [None]
  - Visual acuity reduced [None]
  - Crohn^s disease [None]
  - Diarrhoea [None]
  - Condition aggravated [None]
